FAERS Safety Report 9013289 (Version 1)
Quarter: 2013Q1

REPORT INFORMATION
  Report Type: Spontaneous
  Country: US (occurrence: None)
  Receive Date: 20130107
  Receipt Date: 20130107
  Transmission Date: 20140127
  Serious: Yes (Life-Threatening, Other)
  Sender: FDA-Public Use
  Company Number: None

PATIENT
  Age: 41 Year
  Sex: Male
  Weight: 102.06 kg

DRUGS (2)
  1. TRAMADOL [Suspect]
     Indication: ARTHRALGIA
     Dosage: 1-2 DOSES 3 TIMES PER DAY, ORAL
     Route: 048
     Dates: start: 20121207, end: 20121230
  2. TRAMADOL [Suspect]
     Indication: INTERVERTEBRAL DISC DEGENERATION
     Dosage: 1-2 DOSES 3 TIMES PER DAY, ORAL
     Route: 048
     Dates: start: 20121207, end: 20121230

REACTIONS (2)
  - Drug dependence [None]
  - Drug withdrawal syndrome [None]
